FAERS Safety Report 7704541-0 (Version None)
Quarter: 2011Q3

REPORT INFORMATION
  Report Type: 
  Country: None (occurrence: None)
  Receive Date: 20110823
  Receipt Date: 20110805
  Transmission Date: 20111222
  Serious: Yes (Hospitalization)
  Sender: FDA-Public Use
  Company Number: US-GLAXOSMITHKLINE-A0873471A

PATIENT
  Age: 56 Year
  Sex: Female

DRUGS (19)
  1. FISH OIL [Concomitant]
  2. GLUCOPHAGE [Concomitant]
  3. PLAVIX [Concomitant]
  4. AVACOR [Concomitant]
  5. AVANDIA [Suspect]
     Indication: DIABETES MELLITUS
     Dosage: 4MG TWICE PER DAY
     Route: 048
     Dates: start: 20051129, end: 20061222
  6. IMDUR [Concomitant]
  7. SPIRONOLACTONE [Concomitant]
  8. BYETTA [Concomitant]
  9. CRESTOR [Concomitant]
  10. CLIMARA [Concomitant]
  11. ELAVIL [Concomitant]
  12. TORSEMIDE [Concomitant]
  13. ADVICOR [Concomitant]
  14. AVANDAMET [Suspect]
     Indication: DIABETES MELLITUS
     Route: 048
     Dates: start: 20031218, end: 20070829
  15. DIOVAN [Concomitant]
  16. ATENOLOL [Concomitant]
  17. ASPIRIN [Concomitant]
  18. INSULIN [Concomitant]
  19. METFORMIN HCL [Concomitant]

REACTIONS (4)
  - CORONARY ARTERY BYPASS [None]
  - ACUTE MYOCARDIAL INFARCTION [None]
  - STENT PLACEMENT [None]
  - DEPRESSION [None]
